FAERS Safety Report 17964672 (Version 2)
Quarter: 2020Q3

REPORT INFORMATION
  Report Type: Spontaneous
  Country: CN (occurrence: CN)
  Receive Date: 20200630
  Receipt Date: 20200715
  Transmission Date: 20201103
  Serious: Yes (Other)
  Sender: FDA-Public Use
  Company Number: CN-ALLERGAN-2024760US

PATIENT
  Sex: Male

DRUGS (2)
  1. CEFTAZIDIME;AVIBACTAM ? BP [Suspect]
     Active Substance: AVIBACTAM SODIUM\CEFTAZIDIME
     Indication: INFECTION
     Dosage: 1 DF, BID
     Route: 065
  2. ZYVOX [Interacting]
     Active Substance: LINEZOLID
     Indication: INFECTION
     Dosage: 0.5 DF, QD
     Route: 065

REACTIONS (1)
  - Drug interaction [Recovered/Resolved]
